FAERS Safety Report 13672745 (Version 2)
Quarter: 2017Q3

REPORT INFORMATION
  Report Type: Spontaneous
  Country: PT (occurrence: PT)
  Receive Date: 20170621
  Receipt Date: 20170711
  Transmission Date: 20171127
  Serious: Yes (Life-Threatening, Hospitalization, Other)
  Sender: FDA-Public Use
  Company Number: PT-CONCORDIA PHARMACEUTICALS INC.-E2B_00008187

PATIENT
  Age: 23 Year
  Sex: Female

DRUGS (7)
  1. PREDNISOLONE. [Suspect]
     Active Substance: PREDNISOLONE
     Indication: DRUG REACTION WITH EOSINOPHILIA AND SYSTEMIC SYMPTOMS
  2. PREDNISOLONE. [Suspect]
     Active Substance: PREDNISOLONE
  3. CALCIUM VITAMIN D SUPPLEMENTS [Concomitant]
     Dosage: SUPPLEMENTS
  4. PREDNISOLONE. [Suspect]
     Active Substance: PREDNISOLONE
  5. CYCLOPHOSPHAMIDE. [Suspect]
     Active Substance: CYCLOPHOSPHAMIDE
  6. PANTOPRAZOLE [Concomitant]
     Active Substance: PANTOPRAZOLE
  7. PREDNISOLONE. [Suspect]
     Active Substance: PREDNISOLONE

REACTIONS (4)
  - Diabetic ketoacidosis [Recovered/Resolved]
  - Activated partial thromboplastin time ratio increased [Recovered/Resolved]
  - Hyperglycaemia [Recovered/Resolved]
  - Treatment failure [Unknown]
